FAERS Safety Report 7387051-2 (Version None)
Quarter: 2011Q1

REPORT INFORMATION
  Report Type: 
  Country: None (occurrence: None)
  Receive Date: 20110331
  Receipt Date: 20110324
  Transmission Date: 20110831
  Serious: Yes (Death, Life-Threatening)
  Sender: FDA-Public Use
  Company Number: GB-MERCK-1103GBR00127

PATIENT
  Age: 65 Year
  Sex: Male

DRUGS (8)
  1. PEMETREXED DISODIUM [Suspect]
     Route: 042
     Dates: start: 20101221, end: 20110225
  2. DEXAMETHASONE [Suspect]
     Route: 048
     Dates: end: 20110225
  3. EMEND [Suspect]
     Route: 042
     Dates: start: 20110225, end: 20110225
  4. ACETAMINOPHEN [Concomitant]
     Route: 048
  5. DALTEPARIN SODIUM [Suspect]
     Indication: LUNG NEOPLASM MALIGNANT
     Route: 065
     Dates: start: 20101220, end: 20110225
  6. ONDANSETRON [Suspect]
     Route: 048
  7. CISPLATIN [Suspect]
     Route: 042
     Dates: start: 20101221, end: 20110225
  8. MORPHINE SULFATE [Suspect]
     Route: 048

REACTIONS (4)
  - LARGE INTESTINE PERFORATION [None]
  - ABDOMINAL PAIN [None]
  - PERITONITIS [None]
  - LUNG CANCER METASTATIC [None]
